FAERS Safety Report 5078551-9 (Version None)
Quarter: 2006Q3

REPORT INFORMATION
  Report Type: 
  Country: None (occurrence: None)
  Receive Date: 20060811
  Receipt Date: 20060803
  Transmission Date: 20061208
  Serious: Yes (Hospitalization, Other)
  Sender: FDA-Public Use
  Company Number: JP-MERCK-0608USA01550

PATIENT
  Age: 23 Year
  Sex: Female

DRUGS (3)
  1. MINOCYCLINE HCL [Concomitant]
     Route: 051
     Dates: start: 20060413, end: 20060417
  2. PEPCID RPD [Suspect]
     Indication: ABDOMINAL PAIN UPPER
     Route: 048
     Dates: start: 20060420, end: 20060428
  3. TIENAM [Suspect]
     Indication: PNEUMONIA
     Route: 051
     Dates: start: 20060417, end: 20060401

REACTIONS (5)
  - ABDOMINAL PAIN UPPER [None]
  - HYPERTHERMIA [None]
  - NAUSEA [None]
  - PNEUMONIA [None]
  - PYREXIA [None]
